FAERS Safety Report 18432586 (Version 2)
Quarter: 2021Q1

REPORT INFORMATION
  Report Type: Spontaneous
  Country: US (occurrence: US)
  Receive Date: 20201027
  Receipt Date: 20210128
  Transmission Date: 20210419
  Serious: Yes (Disabling, Congenital Anomaly, Other)
  Sender: FDA-Public Use
  Company Number: US-PURDUE-USA-2020-0169169

PATIENT
  Age: 3 Year
  Sex: Male

DRUGS (2)
  1. BUTRANS [Suspect]
     Active Substance: BUPRENORPHINE
     Indication: PRODUCT USED FOR UNKNOWN INDICATION
     Route: 064
  2. OXYCONTIN [Suspect]
     Active Substance: OXYCODONE HYDROCHLORIDE
     Indication: PRODUCT USED FOR UNKNOWN INDICATION
     Dosage: UNK
     Route: 064

REACTIONS (8)
  - Multiple congenital abnormalities [Not Recovered/Not Resolved]
  - Pneumothorax [Unknown]
  - Drug withdrawal syndrome neonatal [Unknown]
  - Dyslexia [Not Recovered/Not Resolved]
  - Foetal exposure during pregnancy [Unknown]
  - Learning disability [Not Recovered/Not Resolved]
  - Developmental delay [Not Recovered/Not Resolved]
  - Cardiac disorder [Not Recovered/Not Resolved]
